FAERS Safety Report 14267956 (Version 1)
Quarter: 2017Q4

REPORT INFORMATION
  Report Type: Spontaneous
  Country: US (occurrence: None)
  Receive Date: 20171211
  Receipt Date: 20171211
  Transmission Date: 20180321
  Serious: No
  Sender: FDA-Public Use
  Company Number: None

PATIENT
  Sex: Male

DRUGS (1)
  1. TALTZ [Suspect]
     Active Substance: IXEKIZUMAB
     Indication: PSORIASIS
     Dosage: 80MG Q2 WEEKS SUBQ
     Route: 058
     Dates: start: 201711

REACTIONS (3)
  - Influenza [None]
  - Injection site erythema [None]
  - Injection site pruritus [None]
